FAERS Safety Report 5895477-9 (Version None)
Quarter: 2008Q3

REPORT INFORMATION
  Report Type: 
  Country: None (occurrence: None)
  Receive Date: 20080924
  Receipt Date: 20080814
  Transmission Date: 20090109
  Serious: Yes (Death)
  Sender: FDA-Public Use
  Company Number: DE-AVENTIS-200812505DE

PATIENT

DRUGS (1)
  1. CLEXANE [Suspect]
     Indication: THROMBOSIS PROPHYLAXIS
     Dosage: DOSE: NOT REPORTED
     Route: 058
     Dates: start: 20080801, end: 20080801

REACTIONS (1)
  - PULMONARY EMBOLISM [None]
